FAERS Safety Report 10200483 (Version 1)
Quarter: 2014Q2

REPORT INFORMATION
  Report Type: Spontaneous
  Country: CA (occurrence: CA)
  Receive Date: 20140528
  Receipt Date: 20140528
  Transmission Date: 20141212
  Serious: Yes (Hospitalization)
  Sender: FDA-Public Use
  Company Number: CA-AMGEN-CANSP2014038009

PATIENT
  Age: 63 Year
  Sex: Male

DRUGS (7)
  1. SENSIPAR [Suspect]
     Indication: HYPERPARATHYROIDISM SECONDARY
     Dosage: 120 MG, QD
     Route: 065
     Dates: start: 20080114
  2. CALCIUM                            /07357001/ [Concomitant]
  3. RENAGEL                            /01459901/ [Concomitant]
  4. COVERSYL                           /00790702/ [Concomitant]
  5. ELTROXIN [Concomitant]
  6. AMIODARONE [Concomitant]
  7. ASA [Concomitant]
     Dosage: 81 MG, UNK

REACTIONS (7)
  - Abdominal pain [Recovered/Resolved]
  - Fatigue [Unknown]
  - Pain in extremity [Not Recovered/Not Resolved]
  - Arthralgia [Not Recovered/Not Resolved]
  - Gait disturbance [Unknown]
  - Dysstasia [Unknown]
  - Hypotension [Unknown]
